FAERS Safety Report 7801819-7 (Version None)
Quarter: 2011Q4

REPORT INFORMATION
  Report Type: 
  Country: None (occurrence: None)
  Receive Date: 20111007
  Receipt Date: 20111004
  Transmission Date: 20120403
  Serious: Yes (Hospitalization)
  Sender: FDA-Public Use
  Company Number: IT-PFIZER INC-2011079960

PATIENT
  Age: 48 Year
  Sex: Female

DRUGS (7)
  1. PIPERACILLIN AND TAZOBACTAM [Suspect]
     Indication: LUNG INFECTION
     Dosage: 13.5 G DAILY
     Route: 042
     Dates: start: 20110224, end: 20110316
  2. LIMPIDEX [Concomitant]
  3. TACHIDOL [Concomitant]
  4. ACETYLCYSTEINE [Concomitant]
  5. TORADOL [Concomitant]
  6. INDOMETHACIN [Suspect]
     Indication: ARTHRITIS
     Dosage: 50 MG DAILY
     Route: 048
     Dates: start: 20110302, end: 20110316
  7. BACTRIM [Suspect]
     Indication: LUNG INFECTION
     Dosage: 2 UNITS DOSE DAILY
     Route: 048
     Dates: start: 20110308, end: 20110316

REACTIONS (4)
  - PETECHIAE [None]
  - LEUKOPENIA [None]
  - ERYTHEMA [None]
  - DRUG ERUPTION [None]
